FAERS Safety Report 4732200-5 (Version None)
Quarter: 2005Q3

REPORT INFORMATION
  Report Type: 
  Country: None (occurrence: None)
  Receive Date: 20050725
  Receipt Date: 20040604
  Transmission Date: 20060218
  Serious: Yes (Hospitalization, Other)
  Sender: FDA-Public Use
  Company Number: USA-2004-0015994

PATIENT
  Age: 46 Year
  Sex: Female
  Weight: 77.1 kg

DRUGS (6)
  1. MORPHINE SULFATE [Suspect]
  2. COCAINE (COCAINE) [Suspect]
  3. MARIJUANA (CANNABIS) [Suspect]
  4. OXYCONTIN [Concomitant]
  5. LITHIUM [Concomitant]
  6. AMITRIPTYLINE HCL [Concomitant]

REACTIONS (8)
  - ABDOMINAL PAIN [None]
  - CHILLS [None]
  - DEPRESSED LEVEL OF CONSCIOUSNESS [None]
  - LIVER FUNCTION TEST ABNORMAL [None]
  - OVERDOSE [None]
  - POLYSUBSTANCE ABUSE [None]
  - PYREXIA [None]
  - VOMITING [None]
